FAERS Safety Report 15126414 (Version 1)
Quarter: 2018Q3

REPORT INFORMATION
  Report Type: Spontaneous
  Country: US (occurrence: US)
  Receive Date: 20180614
  Receipt Date: 20180614
  Transmission Date: 20181010
  Serious: Yes (Hospitalization)
  Sender: FDA-Public Use
  Company Number: None

PATIENT
  Sex: Female

DRUGS (10)
  1. AFINITOR [Suspect]
     Active Substance: EVEROLIMUS
     Indication: MALIGNANT CONNECTIVE TISSUE NEOPLASM
     Route: 048
     Dates: start: 20180509
  2. VOTRIENT [Suspect]
     Active Substance: PAZOPANIB HYDROCHLORIDE
     Indication: MALIGNANT CONNECTIVE TISSUE NEOPLASM
     Route: 048
     Dates: start: 20180509
  3. KEPPRA [Concomitant]
     Active Substance: LEVETIRACETAM
  4. DECADRON [Concomitant]
     Active Substance: DEXAMETHASONE
  5. LINEZOLID. [Concomitant]
     Active Substance: LINEZOLID
  6. AFINITOR [Suspect]
     Active Substance: EVEROLIMUS
     Indication: SOFT TISSUE SARCOMA
     Route: 048
     Dates: start: 20180509
  7. HYDROMORPHON [Concomitant]
     Active Substance: HYDROMORPHONE
  8. LOVENOX [Concomitant]
     Active Substance: ENOXAPARIN SODIUM
  9. VOTRIENT [Suspect]
     Active Substance: PAZOPANIB HYDROCHLORIDE
     Indication: SOFT TISSUE SARCOMA
     Route: 048
     Dates: start: 20180509
  10. POTASSIUM [Concomitant]
     Active Substance: POTASSIUM

REACTIONS (1)
  - Thrombosis [None]
